FAERS Safety Report 17859378 (Version 1)
Quarter: 2020Q2

REPORT INFORMATION
  Report Type: Spontaneous
  Country: US (occurrence: US)
  Receive Date: 20200603
  Receipt Date: 20200603
  Transmission Date: 20200714
  Serious: No
  Sender: FDA-Public Use
  Company Number: None

PATIENT
  Age: 33 Year
  Sex: Male
  Weight: 110.25 kg

DRUGS (9)
  1. ESCITALOPRAM [Concomitant]
     Active Substance: ESCITALOPRAM OXALATE
  2. VIBERZI [Concomitant]
     Active Substance: ELUXADOLINE
  3. METHYLPREDNISOLONE 4 MG DOSEPK TABLETS,DOSE PACK [Suspect]
     Active Substance: METHYLPREDNISOLONE ACETATE
     Indication: MUSCLE INJURY
     Dates: start: 20200527, end: 20200601
  4. LISINOPRIL. [Concomitant]
     Active Substance: LISINOPRIL
  5. PROBIOTIC SUPPLMENT [Concomitant]
  6. MULTIVITAMIN [Concomitant]
     Active Substance: VITAMINS
  7. ACETYK I CARNITINE [Concomitant]
  8. MELATONIN [Concomitant]
     Active Substance: MELATONIN
  9. CYCLOBENZAPRINE. [Concomitant]
     Active Substance: CYCLOBENZAPRINE

REACTIONS (1)
  - Depression [None]

NARRATIVE: CASE EVENT DATE: 20200530
